FAERS Safety Report 12361035 (Version 1)
Quarter: 2016Q2

REPORT INFORMATION
  Report Type: Spontaneous
  Country: US (occurrence: US)
  Receive Date: 20160512
  Receipt Date: 20160512
  Transmission Date: 20160815
  Serious: No
  Sender: FDA-Public Use
  Company Number: US-BAUSCH-BL-2015-021855

PATIENT
  Age: 66 Year
  Sex: Female
  Weight: 65.83 kg

DRUGS (4)
  1. NASONEX [Concomitant]
     Active Substance: MOMETASONE FUROATE
     Indication: MULTIPLE ALLERGIES
  2. NASONEX [Concomitant]
     Active Substance: MOMETASONE FUROATE
     Indication: NASAL POLYPS
  3. VAGIFEM [Concomitant]
     Active Substance: ESTRADIOL
     Indication: HORMONE REPLACEMENT THERAPY
  4. LATANOPROST OPHTHALMIC SOLUTION 0.005% [Suspect]
     Active Substance: LATANOPROST
     Indication: GLAUCOMA
     Dosage: AT BEDTIME
     Route: 047
     Dates: start: 201412

REACTIONS (2)
  - Ageusia [Not Recovered/Not Resolved]
  - Dysgeusia [Not Recovered/Not Resolved]

NARRATIVE: CASE EVENT DATE: 2015
